FAERS Safety Report 7508667-6 (Version None)
Quarter: 2011Q2

REPORT INFORMATION
  Report Type: 
  Country: None (occurrence: None)
  Receive Date: 20110527
  Receipt Date: 20100514
  Transmission Date: 20111010
  Serious: No
  Sender: FDA-Public Use
  Company Number: A0859771A

PATIENT
  Age: 13 Year
  Sex: Male

DRUGS (2)
  1. VENTOLIN [Suspect]
     Indication: ASTHMA
     Dosage: 2PUFF VARIABLE DOSE
     Route: 055
     Dates: start: 20100514
  2. LORATADINE [Concomitant]

REACTIONS (2)
  - NAUSEA [None]
  - DYSGEUSIA [None]
